FAERS Safety Report 9338136 (Version 1)
Quarter: 2013Q2

REPORT INFORMATION
  Report Type: Spontaneous
  Country: US (occurrence: US)
  Receive Date: 20130610
  Receipt Date: 20130610
  Transmission Date: 20140414
  Serious: No
  Sender: FDA-Public Use
  Company Number: US-B.I. PHARMACEUTICALS,INC./RIDGEFIELD-2013-BI-15808BP

PATIENT
  Age: 60 Year
  Sex: Female
  Weight: 59 kg

DRUGS (5)
  1. COMBIVENT [Suspect]
     Indication: CHRONIC OBSTRUCTIVE PULMONARY DISEASE
     Dosage: STRENGTH: 18 MCG / 103 MCG; DAILY DOSE: 144 MCG / 824 MCG
     Route: 055
     Dates: start: 2003, end: 20130531
  2. COMBIVENT [Suspect]
     Indication: CHRONIC OBSTRUCTIVE PULMONARY DISEASE
     Dosage: STRENGTH: 20 MCG / 100 MCG; DAILY DOSE: 80 MCG / 400 MCG
     Route: 055
     Dates: start: 20130601
  3. 50 PLUS HEALTHY ADVANTAGE [Concomitant]
     Dosage: 1 ANZ
     Route: 048
     Dates: start: 2003
  4. FISH OIL 3-6-9 COMPLEXFISH OIL 3-6-9 COMPLEX [Concomitant]
     Indication: BLOOD CHOLESTEROL INCREASED
     Dosage: 1 ANZ
     Route: 048
     Dates: start: 2008
  5. ADVIL [Concomitant]
     Indication: FIBROMYALGIA
     Dosage: 400 MG
     Route: 048
     Dates: start: 1993

REACTIONS (1)
  - Gingival erythema [Not Recovered/Not Resolved]
